FAERS Safety Report 24997658 (Version 2)
Quarter: 2025Q1

REPORT INFORMATION
  Report Type: Other
  Country: GB (occurrence: GB)
  Receive Date: 20250222
  Receipt Date: 20250222
  Transmission Date: 20250408
  Serious: Yes (Hospitalization, Other)
  Sender: STRIDES
  Company Number: None

PATIENT
  Sex: Female

DRUGS (1)
  1. FLUOXETINE [Suspect]
     Active Substance: FLUOXETINE HYDROCHLORIDE
     Indication: Product used for unknown indication
     Route: 065

REACTIONS (1)
  - Confusional state [Not Recovered/Not Resolved]

NARRATIVE: CASE EVENT DATE: 20250205
